FAERS Safety Report 4340826-6 (Version None)
Quarter: 2004Q2

REPORT INFORMATION
  Report Type: 
  Country: None (occurrence: None)
  Receive Date: 20040414
  Receipt Date: 19970303
  Transmission Date: 20050107
  Serious: Yes (Death, Life-Threatening, Hospitalization)
  Sender: FDA-Public Use
  Company Number: WAES 97022196

PATIENT
  Age: 6 Day
  Sex: Female

DRUGS (5)
  1. INDOCIN I.V. [Suspect]
     Indication: PATENT DUCTUS ARTERIOSUS
     Dosage: UNK; IV (3 DOSE)
     Route: 042
     Dates: start: 19960904, end: 19960906
  2. ASSISTED VENTILATION [Concomitant]
  3. DOBUTAMINE [Concomitant]
  4. DOPAMINE HCL [Concomitant]
  5. FUROSEMIDE [Concomitant]

REACTIONS (8)
  - C-REACTIVE PROTEIN INCREASED [None]
  - CONDITION AGGRAVATED [None]
  - DISSEMINATED INTRAVASCULAR COAGULATION [None]
  - GASTRIC PERFORATION [None]
  - HAEMORRHAGIC DIATHESIS [None]
  - INTESTINAL DILATATION [None]
  - INTRAVENTRICULAR HAEMORRHAGE [None]
  - LUNG INFILTRATION [None]
